FAERS Safety Report 17614475 (Version 3)
Quarter: 2020Q2

REPORT INFORMATION
  Report Type: Report from Study
  Country: IE (occurrence: IE)
  Receive Date: 20200402
  Receipt Date: 20200429
  Transmission Date: 20200713
  Serious: Yes (Life-Threatening, Other)
  Sender: FDA-Public Use
  Company Number: IE-ROCHE-2572877

PATIENT
  Sex: Female
  Weight: 72.1 kg

DRUGS (18)
  1. CARBOPLATIN. [Suspect]
     Active Substance: CARBOPLATIN
     Indication: DIFFUSE LARGE B-CELL LYMPHOMA
     Dosage: R-ICE
     Route: 065
     Dates: end: 2016
  2. DEXAMETHASONE. [Suspect]
     Active Substance: DEXAMETHASONE
     Dosage: R-GDP
     Route: 065
     Dates: start: 2019, end: 2020
  3. DOXORUBICIN HYDROCHLORIDE. [Suspect]
     Active Substance: DOXORUBICIN HYDROCHLORIDE
     Indication: DIFFUSE LARGE B-CELL LYMPHOMA
     Dosage: R-CHOP
     Route: 065
     Dates: end: 201511
  4. DEXAMETHASONE. [Suspect]
     Active Substance: DEXAMETHASONE
     Indication: DIFFUSE LARGE B-CELL LYMPHOMA
     Dosage: R-DHAP
     Route: 065
     Dates: end: 2016
  5. CYTARABINE. [Suspect]
     Active Substance: CYTARABINE
     Indication: DIFFUSE LARGE B-CELL LYMPHOMA
     Dosage: R-DHAP
     Route: 065
     Dates: end: 2016
  6. CISPLATIN. [Suspect]
     Active Substance: CISPLATIN
     Indication: DIFFUSE LARGE B-CELL LYMPHOMA
     Dosage: R-DHAP
     Route: 065
     Dates: end: 2016
  7. CISPLATIN. [Suspect]
     Active Substance: CISPLATIN
     Dosage: R-GDP
     Route: 065
     Dates: start: 2019, end: 2020
  8. MABTHERA [Suspect]
     Active Substance: RITUXIMAB
     Dosage: R-ICE
     Route: 065
     Dates: end: 2016
  9. MABTHERA [Suspect]
     Active Substance: RITUXIMAB
     Dosage: R-DHAP
     Route: 065
     Dates: end: 2016
  10. CYCLOPHOSPHAMIDE. [Suspect]
     Active Substance: CYCLOPHOSPHAMIDE
     Indication: DIFFUSE LARGE B-CELL LYMPHOMA
     Dosage: R-CHOP
     Route: 065
     Dates: end: 201511
  11. ETOPOSIDE. [Suspect]
     Active Substance: ETOPOSIDE
     Indication: DIFFUSE LARGE B-CELL LYMPHOMA
     Dosage: R-ICE
     Route: 065
     Dates: end: 2016
  12. MABTHERA [Suspect]
     Active Substance: RITUXIMAB
     Indication: DIFFUSE LARGE B-CELL LYMPHOMA
     Dosage: R-CHOP
     Route: 065
     Dates: end: 201511
  13. MABTHERA [Suspect]
     Active Substance: RITUXIMAB
     Dosage: R-GDP
     Route: 065
     Dates: start: 2019, end: 2020
  14. IFOSFAMIDE. [Suspect]
     Active Substance: IFOSFAMIDE
     Indication: DIFFUSE LARGE B-CELL LYMPHOMA
     Dosage: R-ICE
     Route: 065
     Dates: end: 2016
  15. GEMCITABINE. [Suspect]
     Active Substance: GEMCITABINE
     Indication: DIFFUSE LARGE B-CELL LYMPHOMA
     Dosage: R-GDP
     Route: 065
     Dates: start: 2019, end: 2020
  16. MABTHERA [Suspect]
     Active Substance: RITUXIMAB
     Route: 065
  17. VINCRISTINE SULFATE. [Suspect]
     Active Substance: VINCRISTINE SULFATE
     Indication: DIFFUSE LARGE B-CELL LYMPHOMA
     Dosage: R-CHOP
     Route: 065
     Dates: end: 201511
  18. DEXAMETHASONE. [Suspect]
     Active Substance: DEXAMETHASONE
     Indication: DIFFUSE LARGE B-CELL LYMPHOMA
     Route: 065
     Dates: start: 2019, end: 2020

REACTIONS (2)
  - Thrombotic thrombocytopenic purpura [Unknown]
  - Diffuse large B-cell lymphoma recurrent [Unknown]
